FAERS Safety Report 23032810 (Version 1)
Quarter: 2023Q4

REPORT INFORMATION
  Report Type: Spontaneous
  Country: GB (occurrence: GB)
  Receive Date: 20231005
  Receipt Date: 20231005
  Transmission Date: 20240110
  Serious: Yes (Other)
  Sender: FDA-Public Use
  Company Number: None

PATIENT
  Age: 76 Year
  Sex: Female
  Weight: 39 kg

DRUGS (4)
  1. ROSUVASTATIN [Suspect]
     Active Substance: ROSUVASTATIN
     Indication: Product used for unknown indication
     Dosage: 10 MILLIGRAM DAILY; TRIAL, UNIT DOSE : 10 MG, OD, THERAPY END DATE : NASK
     Route: 065
     Dates: start: 20230613
  2. ALENDRONIC ACID [Concomitant]
     Active Substance: ALENDRONIC ACID
     Indication: Product used for unknown indication
     Dosage: ON THE SAME DAY EACH WEEK.  SWA...UNIT DOSE : 1 DF, FREQUENCY : 1 IN 1 WEEK
     Dates: start: 20230517
  3. MIRTAZAPINE [Concomitant]
     Active Substance: MIRTAZAPINE
     Indication: Product used for unknown indication
     Dosage: 1 DOSAGE FORMS DAILY; NIGHT, UNIT DOSE : 1 DF, OD
     Dates: start: 20230517
  4. TIMOLOL [Concomitant]
     Active Substance: TIMOLOL
     Indication: Product used for unknown indication
     Dosage: 2 GTT DAILY; INSTIL ONE DROP INTO BOTH EYES AT NIGHT, UNIT DOSE : 2 GTT, OD
     Route: 047
     Dates: start: 20230302

REACTIONS (1)
  - Muscle spasms [Recovering/Resolving]
